FAERS Safety Report 13593528 (Version 1)
Quarter: 2017Q2

REPORT INFORMATION
  Report Type: Spontaneous
  Country: US (occurrence: US)
  Receive Date: 20170530
  Receipt Date: 20170530
  Transmission Date: 20170830
  Serious: No
  Sender: FDA-Public Use
  Company Number: US-TEVA-739752ACC

PATIENT
  Sex: Female

DRUGS (1)
  1. CLOPIDOGREL [Suspect]
     Active Substance: CLOPIDOGREL BISULFATE

REACTIONS (5)
  - Hyperhidrosis [Unknown]
  - Treatment noncompliance [Unknown]
  - Migraine [Unknown]
  - Dizziness [Unknown]
  - Cold sweat [Unknown]
